FAERS Safety Report 16052619 (Version 7)
Quarter: 2020Q3

REPORT INFORMATION
  Report Type: Report from Study
  Country: US (occurrence: US)
  Receive Date: 20190308
  Receipt Date: 20200702
  Transmission Date: 20201102
  Serious: Yes (Life-Threatening, Other)
  Sender: FDA-Public Use
  Company Number: PHEH2019US009869

PATIENT
  Sex: Female
  Weight: 53 kg

DRUGS (3)
  1. KYMRIAH [Suspect]
     Active Substance: TISAGENLECLEUCEL
     Indication: DIFFUSE LARGE B-CELL LYMPHOMA
     Dosage: 14 ML, ONCE/SINGLE
     Route: 042
     Dates: start: 2019
  2. FLUDARABINE [Concomitant]
     Active Substance: FLUDARABINE PHOSPHATE
     Indication: CHEMOTHERAPY
     Route: 065
  3. CYCLOPHOSPHAMIDE. [Concomitant]
     Active Substance: CYCLOPHOSPHAMIDE
     Indication: CHEMOTHERAPY
     Route: 065

REACTIONS (19)
  - Neutrophil count decreased [Unknown]
  - Hypotension [Unknown]
  - Oedema peripheral [Unknown]
  - Gastrointestinal toxicity [Unknown]
  - Pyrexia [Unknown]
  - Hypogammaglobulinaemia [Recovered/Resolved]
  - Haematocrit decreased [Unknown]
  - Diffuse large B-cell lymphoma [Unknown]
  - Aggression [Unknown]
  - Neurotoxicity [Recovered/Resolved]
  - Irritability [Unknown]
  - Haemoglobin decreased [Unknown]
  - Malignant neoplasm progression [Unknown]
  - Lymphocyte count decreased [Unknown]
  - Aphasia [Unknown]
  - Platelet count decreased [Unknown]
  - Musculoskeletal toxicity [Unknown]
  - Cytokine release syndrome [Recovered/Resolved]
  - White blood cell count decreased [Unknown]
